FAERS Safety Report 16487267 (Version 2)
Quarter: 2019Q4

REPORT INFORMATION
  Report Type: Spontaneous
  Country: DE (occurrence: DE)
  Receive Date: 20190627
  Receipt Date: 20191210
  Transmission Date: 20200122
  Serious: Yes (Hospitalization, Congenital Anomaly, Other)
  Sender: FDA-Public Use
  Company Number: PHHY2019DE143541

PATIENT
  Age: 7 Week
  Sex: Female
  Weight: 1.62 kg

DRUGS (13)
  1. PROMETHAZINE [Suspect]
     Active Substance: PROMETHAZINE HYDROCHLORIDE
     Dosage: 200 MG, QD (50 MG, 4X/DAY (QID))
     Route: 064
     Dates: start: 2011, end: 20111124
  2. PROMETHAZINE [Suspect]
     Active Substance: PROMETHAZINE HYDROCHLORIDE
     Indication: FOETAL EXPOSURE DURING PREGNANCY
     Dosage: 30 MG, QD (10 MG, 3X/DAY (TID))
     Route: 064
     Dates: start: 20110527, end: 2011
  3. SEROQUEL [Suspect]
     Active Substance: QUETIAPINE FUMARATE
     Dosage: 200 MG, QD
     Route: 064
     Dates: start: 201105, end: 20111124
  4. ACETYLSALICYLIC ACID [Concomitant]
     Active Substance: ASPIRIN
     Indication: FOETAL EXPOSURE DURING PREGNANCY
     Dosage: 100 MG, QD
     Route: 064
  5. INSULIN [Concomitant]
     Active Substance: INSULIN NOS
     Indication: FOETAL EXPOSURE DURING PREGNANCY
     Dosage: FROM GESTATIONAL WEEK 27
     Route: 064
  6. RISPERDAL CONSTA [Suspect]
     Active Substance: RISPERIDONE
     Dosage: 1 OT, Q3W (25 MG EVERY 3 WEEKS)
     Route: 064
     Dates: start: 2011, end: 20111124
  7. BETAMETHASON [Concomitant]
     Active Substance: BETAMETHASONE
     Indication: FOETAL EXPOSURE DURING PREGNANCY
     Dosage: 12 MG, QD
     Route: 064
     Dates: start: 20111120, end: 20111121
  8. CARBAMAZEPIN [Concomitant]
     Active Substance: CARBAMAZEPINE
     Indication: FOETAL EXPOSURE DURING PREGNANCY
     Dosage: 300 MG, QD (100 MG, TID)
     Route: 064
     Dates: start: 20110927, end: 20111124
  9. MELPERON [Concomitant]
     Active Substance: MELPERONE
     Indication: FOETAL EXPOSURE DURING PREGNANCY
     Dosage: UNK
     Route: 064
     Dates: start: 201104, end: 20110516
  10. SEROQUEL [Suspect]
     Active Substance: QUETIAPINE FUMARATE
     Indication: FOETAL EXPOSURE DURING PREGNANCY
     Dosage: 400 MG, QD
     Route: 064
     Dates: start: 201104, end: 201105
  11. RISPERDAL CONSTA [Suspect]
     Active Substance: RISPERIDONE
     Indication: FOETAL EXPOSURE DURING PREGNANCY
     Dosage: 25 [MG/2WEEKS (AB 4.4 3WEEKS)]/ TILL WK 5 EVERY 2 WKS
     Route: 064
     Dates: start: 201104, end: 2011
  12. IBUPROFEN. [Concomitant]
     Active Substance: IBUPROFEN
     Indication: FOETAL EXPOSURE DURING PREGNANCY
     Dosage: 1 OT, AS NEEDED (PRN)
     Route: 064
     Dates: start: 20110927, end: 20111124
  13. TOLPERISONE [Concomitant]
     Active Substance: TOLPERISONE
     Indication: FOETAL EXPOSURE DURING PREGNANCY
     Dosage: UNK
     Route: 064
     Dates: start: 201104, end: 20110516

REACTIONS (6)
  - Maternal exposure during pregnancy [Unknown]
  - Tracheo-oesophageal fistula [Recovered/Resolved with Sequelae]
  - Low birth weight baby [Unknown]
  - Oesophageal atresia [Recovered/Resolved with Sequelae]
  - Haemangioma congenital [Unknown]
  - Premature baby [Unknown]

NARRATIVE: CASE EVENT DATE: 20110527
